FAERS Safety Report 7691390-5 (Version None)
Quarter: 2011Q3

REPORT INFORMATION
  Report Type: 
  Country: None (occurrence: None)
  Receive Date: 20110818
  Receipt Date: 20110810
  Transmission Date: 20111222
  Serious: Yes (Other)
  Sender: FDA-Public Use
  Company Number: PHEH2011US01150

PATIENT
  Sex: Male

DRUGS (6)
  1. HYDROZOLINE [Concomitant]
     Dosage: 50 MG, UNK
  2. LISINOPRIL [Concomitant]
     Dosage: 20 MG, ONCE AT MORNING
  3. LISINOPRIL [Concomitant]
     Dosage: 40 MG, ONCE AT NIGHT
  4. CLAMODINE [Concomitant]
     Dosage: 0.3 MG, UNK
  5. SANDOSTATIN LAR [Suspect]
     Dosage: 30 MG, QMO
  6. RENAGEL [Concomitant]

REACTIONS (2)
  - HYPERTENSION [None]
  - WEIGHT DECREASED [None]
